FAERS Safety Report 5012720-9 (Version None)
Quarter: 2006Q2

REPORT INFORMATION
  Report Type: 
  Country: None (occurrence: None)
  Receive Date: 20060524
  Receipt Date: 20060511
  Transmission Date: 20061013
  Serious: Yes (Other)
  Sender: FDA-Public Use
  Company Number: 2006050961

PATIENT
  Age: 53 Year
  Sex: Male

DRUGS (2)
  1. VIAGRA [Suspect]
     Indication: ERECTILE DYSFUNCTION
     Dosage: 50 MEQ (50 MG, AS NECESSARY), ORAL
     Route: 048
     Dates: start: 20051201, end: 20050101
  2. VALSARTAN [Concomitant]

REACTIONS (1)
  - DRUG INEFFECTIVE [None]
